FAERS Safety Report 11293882 (Version 2)
Quarter: 2015Q3

REPORT INFORMATION
  Report Type: Spontaneous
  Country: US (occurrence: US)
  Receive Date: 20150722
  Receipt Date: 20150724
  Transmission Date: 20151125
  Serious: No
  Sender: FDA-Public Use
  Company Number: US-009507513-1507USA007686

PATIENT
  Age: 27 Year
  Sex: Female

DRUGS (7)
  1. FOLLITROPIN BETA [Suspect]
     Active Substance: FOLLITROPIN
     Dosage: 112.5 IU
  2. FOLLITROPIN BETA [Suspect]
     Active Substance: FOLLITROPIN
     Dosage: 75 IU
  3. GONADOTROPIN, CHORIONIC [Suspect]
     Active Substance: CHORIOGONADOTROPIN ALFA
     Indication: IN VITRO FERTILISATION
     Dosage: 10000 UNITS
  4. FOLLITROPIN BETA [Suspect]
     Active Substance: FOLLITROPIN
     Dosage: 600 IU, UNK
  5. FOLLITROPIN BETA [Suspect]
     Active Substance: FOLLITROPIN
     Indication: IN VITRO FERTILISATION
     Dosage: 225 HIGHLY PURIFIED (FSH) AND 75 LUTEINIZING HORMONE (LH) AND 75 (FSH) COMBINED
  6. PROGESTERONE. [Suspect]
     Active Substance: PROGESTERONE
     Indication: IN VITRO FERTILISATION
     Route: 067
  7. FOLLITROPIN BETA [Suspect]
     Active Substance: FOLLITROPIN
     Dosage: 225 IU, UNK

REACTIONS (1)
  - Drug ineffective [Unknown]
